FAERS Safety Report 22239840 (Version 1)
Quarter: 2023Q2

REPORT INFORMATION
  Report Type: Spontaneous
  Country: US (occurrence: US)
  Receive Date: 20230421
  Receipt Date: 20230421
  Transmission Date: 20230722
  Serious: No
  Sender: FDA-Public Use
  Company Number: US-LEO Pharma-351421

PATIENT
  Age: 68 Year
  Sex: Female

DRUGS (8)
  1. ADBRY [Suspect]
     Active Substance: TRALOKINUMAB-LDRM
     Indication: Dermatitis atopic
     Dosage: DOSAGE : 600 MG (4 SYRINGES) ON DAY 1
     Route: 058
     Dates: start: 202210
  2. ADBRY [Suspect]
     Active Substance: TRALOKINUMAB-LDRM
     Indication: Dermatitis atopic
     Dosage: DOSAGE : 600 MG (4 SYRINGES) ON DAY 1
     Route: 058
     Dates: start: 202210
  3. ADBRY [Suspect]
     Active Substance: TRALOKINUMAB-LDRM
     Indication: Dermatitis atopic
     Dosage: DOSAGE : 300 MG (2 SYRINGES) EVERY TWO WEEKS STARTING ON DAY 15
     Route: 058
  4. ADBRY [Suspect]
     Active Substance: TRALOKINUMAB-LDRM
     Indication: Dermatitis atopic
     Dosage: DOSAGE : 300 MG (2 SYRINGES) EVERY TWO WEEKS STARTING ON DAY 15
     Route: 058
  5. ADBRY [Suspect]
     Active Substance: TRALOKINUMAB-LDRM
     Indication: Dermatitis atopic
     Dosage: DOSAGE : 300 MG (2 SYRINGES) EVERY TWO WEEKS STARTING ON DAY 15
     Route: 058
  6. ADBRY [Suspect]
     Active Substance: TRALOKINUMAB-LDRM
     Indication: Dermatitis atopic
     Dosage: DOSAGE : 300 MG (2 SYRINGES) EVERY TWO WEEKS STARTING ON DAY 15
     Route: 058
  7. ADBRY [Suspect]
     Active Substance: TRALOKINUMAB-LDRM
     Indication: Dermatitis atopic
     Dosage: DOSAGE : 600 MG (4 SYRINGES) ON DAY 1
     Route: 058
     Dates: start: 202210
  8. ADBRY [Suspect]
     Active Substance: TRALOKINUMAB-LDRM
     Indication: Dermatitis atopic
     Dosage: DOSAGE : 600 MG (4 SYRINGES) ON DAY 1
     Route: 058
     Dates: start: 202210

REACTIONS (1)
  - Viral infection [Unknown]
